FAERS Safety Report 4342376-X (Version None)
Quarter: 2004Q2

REPORT INFORMATION
  Report Type: 
  Country: None (occurrence: None)
  Receive Date: 20040416
  Receipt Date: 20040405
  Transmission Date: 20050107
  Serious: Yes (Other)
  Sender: FDA-Public Use
  Company Number: 2004023074

PATIENT
  Sex: Male
  Weight: 113.3993 kg

DRUGS (6)
  1. NARDIL [Suspect]
     Indication: DEPRESSION
     Dosage: 90 MG (DAILY), ORAL
     Route: 048
     Dates: end: 20040101
  2. DIAMORPHINE (DIAMORPHINE) [Suspect]
     Indication: ILL-DEFINED DISORDER
     Dates: end: 20040101
  3. MORPHINE [Suspect]
     Indication: ILL-DEFINED DISORDER
     Dates: end: 20040101
  4. ALPRAZOLAM [Concomitant]
  5. ZOLPIDEM TARTRATE [Concomitant]
  6. CLONAZEPAM [Concomitant]

REACTIONS (7)
  - ANXIETY [None]
  - DEPRESSION [None]
  - DRUG ABUSER [None]
  - DRUG DEPENDENCE [None]
  - DRUG INEFFECTIVE [None]
  - DRUG WITHDRAWAL SYNDROME [None]
  - PANIC ATTACK [None]
